FAERS Safety Report 8307068-0 (Version None)
Quarter: 2012Q2

REPORT INFORMATION
  Report Type: 
  Country: None (occurrence: None)
  Receive Date: 20120424
  Receipt Date: 20120419
  Transmission Date: 20120825
  Serious: Yes (Death, Other)
  Sender: FDA-Public Use
  Company Number: PHHY2012CA034182

PATIENT
  Sex: Male

DRUGS (3)
  1. CLOZARIL [Suspect]
     Indication: SCHIZOPHRENIA
     Dosage: 800 MG, UNK
     Route: 048
     Dates: start: 19920525
  2. SEROQUEL [Concomitant]
     Dosage: 25 MG, BID
     Dates: start: 20101210
  3. CLOZARIL [Suspect]
     Dosage: 525 MG,
     Route: 048
     Dates: end: 20120401

REACTIONS (4)
  - DEATH [None]
  - INFLUENZA LIKE ILLNESS [None]
  - ANTIPSYCHOTIC DRUG LEVEL ABOVE THERAPEUTIC [None]
  - UNRESPONSIVE TO STIMULI [None]
